FAERS Safety Report 4762096-7 (Version None)
Quarter: 2005Q3

REPORT INFORMATION
  Report Type: 
  Country: None (occurrence: None)
  Receive Date: 20050901
  Receipt Date: 20050511
  Transmission Date: 20060218
  Serious: No
  Sender: FDA-Public Use
  Company Number: 200510944BWH

PATIENT
  Age: 67 Year
  Sex: Male

DRUGS (2)
  1. LEVITRA [Suspect]
     Dosage: SEE IMAGE
     Route: 048
  2. LEVITRA [Suspect]

REACTIONS (1)
  - DRUG INEFFECTIVE [None]
